FAERS Safety Report 6304078-X (Version None)
Quarter: 2009Q3

REPORT INFORMATION
  Report Type: 
  Country: None (occurrence: None)
  Receive Date: 20090810
  Receipt Date: 20090810
  Transmission Date: 20100115
  Serious: Yes (Life-Threatening)
  Sender: FDA-Public Use
  Company Number: None

PATIENT
  Age: 49 Year
  Sex: Male
  Weight: 91.173 kg

DRUGS (2)
  1. TRAMADOL HCL [Suspect]
     Indication: PAIN MANAGEMENT
     Dosage: 50 MG 6 TO 8 HOURS PO
     Route: 048
     Dates: start: 20070913, end: 20090811
  2. CYCLOBENAZPRINE [Suspect]
     Indication: PAIN MANAGEMENT
     Dosage: 10 MG 8 HOURS PO
     Route: 048
     Dates: start: 20070913, end: 20090811

REACTIONS (10)
  - ASTHENIA [None]
  - CONFUSIONAL STATE [None]
  - DYSPNOEA [None]
  - HEART RATE INCREASED [None]
  - HEART RATE IRREGULAR [None]
  - MENTAL STATUS CHANGES [None]
  - MOOD ALTERED [None]
  - PALPITATIONS [None]
  - SOMNOLENCE [None]
  - VISUAL IMPAIRMENT [None]
